FAERS Safety Report 8914676 (Version 2)
Quarter: 2013Q2

REPORT INFORMATION
  Report Type: Spontaneous
  Country: US (occurrence: US)
  Receive Date: 20121119
  Receipt Date: 20130425
  Transmission Date: 20140414
  Serious: No
  Sender: FDA-Public Use
  Company Number: US-009507513-1211USA006610

PATIENT
  Sex: Male

DRUGS (2)
  1. ASMANEX TWISTHALER [Suspect]
     Indication: ASTHMA
     Dosage: 1 PUFF, BID
     Dates: start: 201011
  2. [THERAPY UNSPECIFIED] [Concomitant]
     Dosage: UNK

REACTIONS (3)
  - Wheezing [Recovering/Resolving]
  - Product quality issue [Unknown]
  - Drug dose omission [Unknown]
